FAERS Safety Report 9675747 (Version 1)
Quarter: 2013Q4

REPORT INFORMATION
  Report Type: Report from Study
  Country: BR (occurrence: BR)
  Receive Date: 20131107
  Receipt Date: 20131107
  Transmission Date: 20140711
  Serious: Yes (Hospitalization)
  Sender: FDA-Public Use
  Company Number: BR-ABBVIE-13P-020-1165441-00

PATIENT
  Sex: Male
  Weight: 43 kg

DRUGS (1)
  1. HUMIRA [Suspect]
     Indication: CROHN^S DISEASE
     Route: 058
     Dates: start: 20130929

REACTIONS (2)
  - Fistula [Not Recovered/Not Resolved]
  - Gastrointestinal motility disorder [Unknown]
